FAERS Safety Report 12702478 (Version 2)
Quarter: 2016Q4

REPORT INFORMATION
  Report Type: Spontaneous
  Country: US (occurrence: US)
  Receive Date: 20160831
  Receipt Date: 20161025
  Transmission Date: 20170207
  Serious: No
  Sender: FDA-Public Use
  Company Number: US-JNJFOC-20160811991

PATIENT
  Sex: Female
  Weight: 56.7 kg

DRUGS (2)
  1. TOPAMAX [Suspect]
     Active Substance: TOPIRAMATE
     Indication: MUSCLE TWITCHING
     Route: 048
  2. TOPAMAX [Suspect]
     Active Substance: TOPIRAMATE
     Indication: MUSCLE TWITCHING
     Dosage: SEVERAL TIMES A DAY
     Route: 048
     Dates: start: 2014

REACTIONS (3)
  - Drug ineffective [Unknown]
  - Product use issue [Unknown]
  - Off label use [Unknown]
